FAERS Safety Report 10572778 (Version 1)
Quarter: 2014Q4

REPORT INFORMATION
  Report Type: Spontaneous
  Country: ES (occurrence: None)
  Receive Date: 20141106
  Receipt Date: 20141106
  Transmission Date: 20150529
  Serious: Yes (Hospitalization)
  Sender: FDA-Public Use
  Company Number: IMP_08026_2014

PATIENT
  Age: 40 Year
  Sex: Female

DRUGS (1)
  1. CABERGOLINE (CABERGOLINE) [Suspect]
     Active Substance: CABERGOLINE
     Indication: BLOOD PROLACTIN ABNORMAL
     Dosage: PER WEEK

REACTIONS (9)
  - Pituitary haemorrhage [None]
  - Blood prolactin increased [None]
  - Hemianopia [None]
  - Pituitary tumour benign [None]
  - Diabetes insipidus [None]
  - Headache [None]
  - Blood cortisol decreased [None]
  - Visual acuity reduced [None]
  - Vision blurred [None]
